FAERS Safety Report 12782924 (Version 3)
Quarter: 2016Q4

REPORT INFORMATION
  Report Type: Spontaneous
  Country: US (occurrence: US)
  Receive Date: 20160927
  Receipt Date: 20161209
  Transmission Date: 20170207
  Serious: Yes (Hospitalization)
  Sender: FDA-Public Use
  Company Number: US-PFIZER INC-2016352667

PATIENT
  Age: 69 Year
  Sex: Male

DRUGS (2)
  1. SUTENT [Suspect]
     Active Substance: SUNITINIB MALATE
     Indication: RENAL CANCER
     Dosage: 50 MG, CYCLIC (1 CAPSULE DAILY FOR 4 WEEKS AND THEN 2 WEEKS OFF) (ONCE/DAY)
     Dates: start: 20160726, end: 20160908
  2. SUTENT [Suspect]
     Active Substance: SUNITINIB MALATE
     Dosage: 37.5 MG, CYCLIC (TAKE ONE CAPSULE BY MOUTH ONCE A DAY 4 WEEKS ON, 2 WEEKS OFF)
     Route: 048
     Dates: start: 20160913

REACTIONS (4)
  - Dysphagia [Unknown]
  - Glossodynia [Not Recovered/Not Resolved]
  - Stomatitis [Recovered/Resolved]
  - Fatigue [Not Recovered/Not Resolved]
